FAERS Safety Report 20155678 (Version 2)
Quarter: 2021Q4

REPORT INFORMATION
  Report Type: Report from Study
  Country: US (occurrence: US)
  Receive Date: 20211207
  Receipt Date: 20211213
  Transmission Date: 20220303
  Serious: Yes (Hospitalization)
  Sender: FDA-Public Use
  Company Number: US-TAKEDA-2021TUS076620

PATIENT
  Age: 44 Year
  Sex: Male

DRUGS (1)
  1. VEDOLIZUMAB [Suspect]
     Active Substance: VEDOLIZUMAB
     Indication: Colitis ulcerative
     Dosage: 300 MILLIGRAM
     Route: 042
     Dates: start: 20211022

REACTIONS (6)
  - Concussion [Recovering/Resolving]
  - Rib fracture [Recovering/Resolving]
  - Fatigue [Recovered/Resolved]
  - Nausea [Recovering/Resolving]
  - Feeling abnormal [Unknown]
  - Road traffic accident [Recovering/Resolving]

NARRATIVE: CASE EVENT DATE: 20211022
